FAERS Safety Report 19029874 (Version 2)
Quarter: 2021Q2

REPORT INFORMATION
  Report Type: Report from Study
  Country: AR (occurrence: AR)
  Receive Date: 20210318
  Receipt Date: 20210405
  Transmission Date: 20210717
  Serious: Yes (Hospitalization)
  Sender: FDA-Public Use
  Company Number: NVSC2021AR057133

PATIENT
  Age: 79 Year
  Sex: Female

DRUGS (2)
  1. DIOVAN D [Suspect]
     Active Substance: HYDROCHLOROTHIAZIDE\VALSARTAN
     Indication: ARRHYTHMIA
     Dosage: 1 DF, QD OF 320/25, MORE THAN 4 YEARS AGO
     Route: 065
  2. DIOVAN D [Suspect]
     Active Substance: HYDROCHLOROTHIAZIDE\VALSARTAN
     Indication: BLOOD PRESSURE INCREASED

REACTIONS (15)
  - Pyrexia [Recovered/Resolved]
  - Arrhythmia [Unknown]
  - Diarrhoea [Unknown]
  - Gastrointestinal disorder [Recovered/Resolved]
  - Pulmonary mass [Unknown]
  - Product use in unapproved indication [Unknown]
  - Depressed mood [Unknown]
  - Limb discomfort [Unknown]
  - Headache [Unknown]
  - Fatigue [Unknown]
  - Hypersomnia [Unknown]
  - COVID-19 [Unknown]
  - Abdominal pain upper [Unknown]
  - Vomiting [Unknown]
  - Nausea [Unknown]

NARRATIVE: CASE EVENT DATE: 202007
